FAERS Safety Report 5133915-X (Version None)
Quarter: 2006Q4

REPORT INFORMATION
  Report Type: 
  Country: None (occurrence: None)
  Receive Date: 20061018
  Receipt Date: 20051115
  Transmission Date: 20070319
  Serious: Yes (Hospitalization)
  Sender: FDA-Public Use
  Company Number: 2005BH000268

PATIENT
  Age: 52 Year
  Sex: Female

DRUGS (6)
  1. DIANEAL [Suspect]
     Indication: DRUG USE FOR UNKNOWN INDICATION
     Dosage: 2 L; 5X A DAY; LP
     Dates: start: 20050527
  2. ATENOLOL [Concomitant]
  3. PHOSLO [Concomitant]
  4. FOLIC ACID [Concomitant]
  5. FERROUS SULFATE TAB [Concomitant]
  6. VICODIN [Concomitant]

REACTIONS (7)
  - ABDOMINAL PAIN UPPER [None]
  - KIDNEY INFECTION [None]
  - PRURITUS [None]
  - PYREXIA [None]
  - RASH [None]
  - SENSORY DISTURBANCE [None]
  - URINARY TRACT INFECTION [None]
